FAERS Safety Report 19172184 (Version 2)
Quarter: 2021Q2

REPORT INFORMATION
  Report Type: Spontaneous
  Country: US (occurrence: US)
  Receive Date: 20210423
  Receipt Date: 20210531
  Transmission Date: 20210717
  Serious: No
  Sender: FDA-Public Use
  Company Number: US-SA-2021SA134563

PATIENT
  Sex: Female

DRUGS (3)
  1. DUPIXENT [Suspect]
     Active Substance: DUPILUMAB
     Dosage: 300 MG, QOW
     Route: 058
  2. DUPIXENT [Suspect]
     Active Substance: DUPILUMAB
     Indication: DERMATITIS ATOPIC
     Dosage: 600 MG, 1X
     Route: 058
  3. PROLIA [Concomitant]
     Active Substance: DENOSUMAB
     Dosage: FORMULATION: SYRINGE

REACTIONS (4)
  - Pruritus [Recovering/Resolving]
  - Electric shock sensation [Unknown]
  - Burning sensation [Recovering/Resolving]
  - Therapeutic response decreased [Unknown]
